FAERS Safety Report 5137872-1 (Version None)
Quarter: 2006Q4

REPORT INFORMATION
  Report Type: 
  Country: None (occurrence: None)
  Receive Date: 20061030
  Receipt Date: 20060131
  Transmission Date: 20070319
  Serious: No
  Sender: FDA-Public Use
  Company Number: US-GLAXOSMITHKLINE-A0591692A

PATIENT
  Age: 91 Year
  Sex: Female

DRUGS (11)
  1. ADVAIR HFA [Suspect]
     Indication: DRUG USE FOR UNKNOWN INDICATION
     Dosage: 1PUFF PER DAY
     Route: 055
  2. FLOVENT [Concomitant]
  3. HYDRALAZINE HCL [Concomitant]
  4. LASIX [Concomitant]
  5. COZAAR [Concomitant]
  6. DILANTIN [Concomitant]
  7. POTASSIUM ACETATE [Concomitant]
  8. CALCIUM GLUCONATE [Concomitant]
  9. ASPIRIN [Concomitant]
  10. PREVACID [Concomitant]
     Route: 065
  11. AZUNOL [Concomitant]
     Route: 065

REACTIONS (3)
  - NERVOUSNESS [None]
  - PALPITATIONS [None]
  - PHARMACEUTICAL PRODUCT COMPLAINT [None]
